FAERS Safety Report 8569453-1 (Version None)
Quarter: 2012Q3

REPORT INFORMATION
  Report Type: 
  Country: None (occurrence: None)
  Receive Date: 20120803
  Receipt Date: 20120502
  Transmission Date: 20120928
  Serious: No
  Sender: FDA-Public Use
  Company Number: US-ABBOTT-12P-163-0931520-00

PATIENT
  Sex: Female
  Weight: 74.456 kg

DRUGS (16)
  1. NIASPAN [Suspect]
     Dosage: 500MG-1/2 IN AM, 1/2 IN PM
     Dates: start: 20120501
  2. NIASPAN [Suspect]
     Indication: HYPERSENSITIVITY
     Dosage: IN THE MORNING
  3. ASPIRIN [Concomitant]
     Indication: PRODUCT USED FOR UNKNOWN INDICATION
     Dosage: 30 MINUTES BEFORE DOSE OF NIASPAN
     Route: 048
  4. STRESS B COMPLEX [Concomitant]
     Indication: VITAMIN SUPPLEMENTATION
     Route: 048
  5. RED YEAST RICE [Concomitant]
     Indication: PRODUCT USED FOR UNKNOWN INDICATION
     Route: 048
  6. POTASSIUM [Concomitant]
     Indication: PRODUCT USED FOR UNKNOWN INDICATION
     Route: 048
  7. LOSARTAN POTASSIUM [Concomitant]
     Indication: PRODUCT USED FOR UNKNOWN INDICATION
     Route: 048
  8. AMLODIPINE [Concomitant]
     Indication: PRODUCT USED FOR UNKNOWN INDICATION
     Route: 048
  9. NAPROXYN SODIUM [Concomitant]
     Indication: BACK PAIN
     Route: 048
  10. NIASPAN [Suspect]
     Indication: BLOOD CHOLESTEROL INCREASED
     Dosage: AT BEDTIME
     Route: 048
  11. ONE A DAY [Concomitant]
     Indication: VITAMIN SUPPLEMENTATION
     Route: 048
  12. CALCIUM [Concomitant]
     Indication: PRODUCT USED FOR UNKNOWN INDICATION
     Route: 048
  13. CLARITIN [Concomitant]
     Indication: PRODUCT USED FOR UNKNOWN INDICATION
     Route: 048
  14. CO Q10 [Concomitant]
     Indication: PRODUCT USED FOR UNKNOWN INDICATION
     Route: 048
  15. VITAMIN D [Concomitant]
     Indication: PRODUCT USED FOR UNKNOWN INDICATION
     Route: 048
  16. GLUCOSAMINE [Concomitant]
     Indication: PRODUCT USED FOR UNKNOWN INDICATION
     Route: 048

REACTIONS (7)
  - ERYTHEMA [None]
  - WRONG TECHNIQUE IN DRUG USAGE PROCESS [None]
  - ABNORMAL DREAMS [None]
  - DRY MOUTH [None]
  - THROMBOSIS [None]
  - FLUSHING [None]
  - DISORIENTATION [None]
